FAERS Safety Report 4278563-9 (Version None)
Quarter: 2004Q1

REPORT INFORMATION
  Report Type: 
  Country: None (occurrence: None)
  Receive Date: 20040121
  Receipt Date: 20040114
  Transmission Date: 20041129
  Serious: Yes (Death, Hospitalization)
  Sender: FDA-Public Use
  Company Number: GBWYE405314NOV03

PATIENT
  Age: 24 Year
  Sex: Female

DRUGS (7)
  1. EFFEXOR XR [Suspect]
     Dosage: SEE IMAGE
     Route: 048
     Dates: start: 20031122, end: 20031122
  2. EFFEXOR XR [Suspect]
     Dosage: SEE IMAGE
     Route: 048
     Dates: start: 20010703
  3. ALCOHOL (ETHANOL, ,0) [Suspect]
     Dosage: ORAL
     Route: 048
     Dates: start: 20031122, end: 20031122
  4. ANADIN PARACETAMOL (ACETAMINOPHEN, TABLET, 0) [Suspect]
     Dosage: 79 PARACETAMOL AND ASPIRIN TABLETS ORAL
     Route: 048
     Dates: start: 20031122
  5. ASPIRIN [Suspect]
     Dosage: 79 PARACETAMOL AND ASPIRIN TABLETS ORAL
     Route: 048
     Dates: start: 20031122, end: 20031122
  6. ATENOLOL [Suspect]
     Dosage: 14 X 25MG OVERDOSE ORAL
     Route: 048
     Dates: start: 20031122, end: 20031122
  7. SERTRALINE HCL [Suspect]
     Dosage: 14 X 100MG OVERDOSE ORAL
     Route: 048
     Dates: start: 20031122, end: 20031122

REACTIONS (19)
  - AGITATION [None]
  - ALCOHOL POISONING [None]
  - CARDIAC ARREST [None]
  - COMPLETED SUICIDE [None]
  - CYANOSIS [None]
  - DEPRESSED LEVEL OF CONSCIOUSNESS [None]
  - DISORIENTATION [None]
  - GRAND MAL CONVULSION [None]
  - HYPOTENSION [None]
  - INTENTIONAL OVERDOSE [None]
  - MALAISE [None]
  - MULTIPLE DRUG OVERDOSE [None]
  - NAUSEA [None]
  - PERIPHERAL COLDNESS [None]
  - PERSONALITY DISORDER [None]
  - RETCHING [None]
  - SEROTONIN SYNDROME [None]
  - TACHYCARDIA [None]
  - VENTRICULAR TACHYCARDIA [None]
